FAERS Safety Report 11573603 (Version 2)
Quarter: 2015Q4

REPORT INFORMATION
  Report Type: Spontaneous
  Country: US (occurrence: US)
  Receive Date: 20150916
  Receipt Date: 20151027
  Transmission Date: 20160304
  Serious: No
  Sender: FDA-Public Use
  Company Number: US-ELI_LILLY_AND_COMPANY-US200911000957

PATIENT
  Sex: Female

DRUGS (3)
  1. ENTOCORT [Concomitant]
     Active Substance: BUDESONIDE
  2. QUESTRAN [Concomitant]
     Active Substance: CHOLESTYRAMINE
     Indication: BILE OUTPUT
  3. FORTEO [Suspect]
     Active Substance: TERIPARATIDE
     Indication: OSTEOPOROSIS
     Dosage: UNK, UNKNOWN
     Dates: start: 2007, end: 2007

REACTIONS (6)
  - Pyrexia [Recovered/Resolved]
  - Chest discomfort [Unknown]
  - Aspartate aminotransferase increased [Recovered/Resolved]
  - Lymphadenopathy [Recovered/Resolved]
  - Hepatic enzyme increased [Recovered/Resolved]
  - Alanine aminotransferase increased [Recovered/Resolved]

NARRATIVE: CASE EVENT DATE: 2007
